FAERS Safety Report 10178130 (Version 1)
Quarter: 2014Q2

REPORT INFORMATION
  Report Type: Spontaneous
  Country: AU (occurrence: AU)
  Receive Date: 20140519
  Receipt Date: 20140519
  Transmission Date: 20141212
  Serious: Yes (Hospitalization)
  Sender: FDA-Public Use
  Company Number: AU-009507513-1405AUS007258

PATIENT
  Sex: Male

DRUGS (3)
  1. RIBAVIRIN [Suspect]
  2. PEGASYS [Suspect]
  3. TELAPREVIR [Concomitant]

REACTIONS (1)
  - Endocarditis [Unknown]
